APPROVED DRUG PRODUCT: OXYMORPHONE HYDROCHLORIDE
Active Ingredient: OXYMORPHONE HYDROCHLORIDE
Strength: 30MG
Dosage Form/Route: TABLET, EXTENDED RELEASE;ORAL
Application: A202946 | Product #006
Applicant: SPECGX LLC
Approved: Jun 27, 2014 | RLD: No | RS: No | Type: DISCN